FAERS Safety Report 9500670 (Version 1)
Quarter: 2013Q1

REPORT INFORMATION
  Report Type: Spontaneous
  Country: US (occurrence: None)
  Receive Date: 20130107
  Receipt Date: 20130107
  Transmission Date: 20140127
  Serious: No
  Sender: FDA-Public Use
  Company Number: PHEH2012US018417

PATIENT
  Sex: Female

DRUGS (3)
  1. GILENYA (FTY) [Suspect]
     Indication: MULTIPLE SCLEROSIS
     Route: 048
     Dates: start: 20111213
  2. MAYALT [Concomitant]
  3. LEXAPRO (ESCITALOPRAM OXALATE) [Concomitant]

REACTIONS (5)
  - Red blood cell count decreased [None]
  - Neutrophil count increased [None]
  - Malaise [None]
  - Chronic sinusitis [None]
  - White blood cell count decreased [None]
